FAERS Safety Report 11887973 (Version 1)
Quarter: 2016Q1

REPORT INFORMATION
  Report Type: Spontaneous
  Country: US (occurrence: None)
  Receive Date: 20160104
  Receipt Date: 20160104
  Transmission Date: 20160526
  Serious: Yes (Other)
  Sender: FDA-Public Use
  Company Number: None

PATIENT
  Age: 54 Year
  Sex: Female
  Weight: 56.7 kg

DRUGS (12)
  1. MEDICAL MJ [Concomitant]
  2. VIT B COMPLEX [Concomitant]
  3. MELATONIN [Concomitant]
     Active Substance: MELATONIN
  4. ZYRTEC [Concomitant]
     Active Substance: CETIRIZINE HYDROCHLORIDE
  5. VITAMIN D [Concomitant]
     Active Substance: CHOLECALCIFEROL
  6. TRAMADOL 50MG TEVA [Suspect]
     Active Substance: TRAMADOL
     Indication: NAIL-PATELLA SYNDROME
     Route: 048
  7. FLUOXETINE [Concomitant]
     Active Substance: FLUOXETINE HYDROCHLORIDE
  8. DESIPERAMINE [Concomitant]
  9. TRAMADOL 50MG TEVA [Suspect]
     Active Substance: TRAMADOL
     Indication: PAIN
     Route: 048
  10. SUMATRIPTAN SUCCINATE. [Concomitant]
     Active Substance: SUMATRIPTAN SUCCINATE
  11. LATANOPROST. [Concomitant]
     Active Substance: LATANOPROST
  12. CALCIUM [Concomitant]
     Active Substance: CALCIUM

REACTIONS (8)
  - Product quality issue [None]
  - Hyperhidrosis [None]
  - Fall [None]
  - Hypersensitivity [None]
  - Drug effect increased [None]
  - Toxicity to various agents [None]
  - Loss of consciousness [None]
  - Sneezing [None]

NARRATIVE: CASE EVENT DATE: 20151122
